FAERS Safety Report 8270702-8 (Version None)
Quarter: 2012Q2

REPORT INFORMATION
  Report Type: 
  Country: None (occurrence: None)
  Receive Date: 20120406
  Receipt Date: 20120326
  Transmission Date: 20120825
  Serious: Yes (Hospitalization)
  Sender: FDA-Public Use
  Company Number: 2012000071

PATIENT
  Age: 88 Year
  Sex: Male

DRUGS (12)
  1. SINTROM [Concomitant]
  2. ALBUTEROL SULFATE [Concomitant]
  3. ACETAMINOPHEN [Concomitant]
  4. ACEON [Suspect]
     Indication: HYPERTENSION
     Dosage: 5 MG, QD, ORAL
     Route: 048
     Dates: start: 20111101
  5. ASPIRIN [Concomitant]
  6. ATORVASTATIN CALCIUM [Concomitant]
  7. BECLOMETHASONE DIPROPIONATE [Concomitant]
  8. ALLOPURINOL [Concomitant]
  9. ZOPICLONE (ZOPICLONE) [Concomitant]
  10. FUROSEMIDE [Suspect]
     Indication: HYPERTENSION
     Dosage: 1 DF, QD, ORAL
     Route: 048
     Dates: start: 20111001, end: 20120117
  11. KETOTIFEN (KETOTIFEN) [Concomitant]
  12. LANZOPRAZOL (LANSOPRAZOLE) [Concomitant]

REACTIONS (11)
  - DRUG INTERACTION [None]
  - DIARRHOEA [None]
  - OVERDOSE [None]
  - HYPONATRAEMIA [None]
  - ASTHENIA [None]
  - INTERNATIONAL NORMALISED RATIO INCREASED [None]
  - DEHYDRATION [None]
  - OEDEMA PERIPHERAL [None]
  - ECCHYMOSIS [None]
  - RENAL FAILURE ACUTE [None]
  - MALNUTRITION [None]
